FAERS Safety Report 7354626-6 (Version None)
Quarter: 2011Q1

REPORT INFORMATION
  Report Type: 
  Country: None (occurrence: None)
  Receive Date: 20110316
  Receipt Date: 20110311
  Transmission Date: 20110831
  Serious: Yes (Death, Other)
  Sender: FDA-Public Use
  Company Number: US-PFIZER INC-2010045802

PATIENT
  Sex: Male

DRUGS (1)
  1. CHANTIX [Suspect]
     Indication: SMOKING CESSATION THERAPY
     Dosage: 0.5MG STARTER PACK AND THEN CONTINUATION PACK WITH 1MG TWICE DAILY  UNK
     Dates: start: 20081107

REACTIONS (2)
  - DIABETES MELLITUS [None]
  - COMPLETED SUICIDE [None]
